FAERS Safety Report 6330040-7 (Version None)
Quarter: 2009Q3

REPORT INFORMATION
  Report Type: 
  Country: None (occurrence: None)
  Receive Date: 20090825
  Receipt Date: 20090817
  Transmission Date: 20100115
  Serious: Yes (Death)
  Sender: FDA-Public Use
  Company Number: 2008AL010964

PATIENT
  Age: 80 Year
  Sex: Female

DRUGS (38)
  1. DIGOXIN [Suspect]
     Dosage: 0.25MG, DAILY, PO
     Route: 048
  2. NOVOLOG [Concomitant]
  3. CARAFATE [Concomitant]
  4. PAMELOR [Concomitant]
  5. ZESTRIL [Concomitant]
  6. ZOCOR [Concomitant]
  7. LOPRESSOR [Concomitant]
  8. PREDNISONE [Concomitant]
  9. K-DUR [Concomitant]
  10. PRILOSEC [Concomitant]
  11. ASPIRIN [Concomitant]
  12. KEFLEX [Concomitant]
  13. PERCOCET [Concomitant]
  14. GLUCOPHAGE [Concomitant]
  15. LASIX [Concomitant]
  16. AMBIEN [Concomitant]
  17. FOSAMEX [Concomitant]
  18. POTASSIUM CHLORIDE [Concomitant]
  19. CALCIUM [Concomitant]
  20. NORTRIPTYLINE HCL [Concomitant]
  21. BION TEARS [Concomitant]
  22. LISINOPRIL [Concomitant]
  23. METOPROLOL [Concomitant]
  24. NITROGLYCERIN [Concomitant]
  25. FUROSEMIDE [Concomitant]
  26. FOSAMAX [Concomitant]
  27. NORTRIPTYLINE HCL [Concomitant]
  28. CIPROFLAXACIN [Concomitant]
  29. ISOSORBIDE MONONITRATE [Concomitant]
  30. CLINDAMYCIN [Concomitant]
  31. METFORMIN HCL [Concomitant]
  32. LEXAPRO [Concomitant]
  33. OXYCODONE [Concomitant]
  34. OMEPRAZOLE [Concomitant]
  35. SIMVASTATIN [Concomitant]
  36. ZOLPIDEM [Concomitant]
  37. NITROGLYCERIN [Concomitant]
  38. AVELIDE [Concomitant]

REACTIONS (25)
  - ABDOMINAL TENDERNESS [None]
  - ANHEDONIA [None]
  - ASTHENIA [None]
  - ATRIAL FIBRILLATION [None]
  - CARDIAC FAILURE CONGESTIVE [None]
  - CARDIOACTIVE DRUG LEVEL INCREASED [None]
  - CHEST PAIN [None]
  - COMMUNICATION DISORDER [None]
  - CONFUSIONAL STATE [None]
  - DEAFNESS NEUROSENSORY [None]
  - DIZZINESS [None]
  - DYSPNOEA [None]
  - ECONOMIC PROBLEM [None]
  - EMOTIONAL DISORDER [None]
  - ENTEROCOLITIS INFECTIOUS [None]
  - FALL [None]
  - HYPERHIDROSIS [None]
  - HYPOTENSION [None]
  - INJURY [None]
  - LOSS OF EMPLOYMENT [None]
  - MENTAL DISORDER [None]
  - PAIN [None]
  - SEPSIS [None]
  - SOCIAL AVOIDANT BEHAVIOUR [None]
  - TINNITUS [None]
